FAERS Safety Report 19586027 (Version 2)
Quarter: 2021Q3

REPORT INFORMATION
  Report Type: Spontaneous
  Country: CA (occurrence: CA)
  Receive Date: 20210720
  Receipt Date: 20210804
  Transmission Date: 20211014
  Serious: Yes (Other)
  Sender: FDA-Public Use
  Company Number: CA-SA-2021SA227097

PATIENT
  Age: 44 Year
  Sex: Female
  Weight: 63 kg

DRUGS (79)
  1. IMURAN [Suspect]
     Active Substance: AZATHIOPRINE
     Dosage: 150 MG
  2. NAPROXEN. [Suspect]
     Active Substance: NAPROXEN
     Dosage: 500 MG, BID
  3. PREDNISONE. [Suspect]
     Active Substance: PREDNISONE
     Dosage: UNK
     Route: 048
  4. RANITIDINE HYDROCHLORIDE. [Suspect]
     Active Substance: RANITIDINE HYDROCHLORIDE
     Dosage: 15 MG, BID
  5. SULFAMETHOXAZOLE/TRIMETHOPRIM [Suspect]
     Active Substance: SULFAMETHOXAZOLE\TRIMETHOPRIM
  6. TRIMETHOPRIM. [Suspect]
     Active Substance: TRIMETHOPRIM
  7. ORENCIA [Concomitant]
     Active Substance: ABATACEPT
     Indication: RHEUMATOID ARTHRITIS
  8. ALENDRONATE SODIUM. [Suspect]
     Active Substance: ALENDRONATE SODIUM
  9. GOLD BOND ORIGINAL STRENGTH POWDER [Suspect]
     Active Substance: MENTHOL\ZINC OXIDE
  10. IMURAN [Suspect]
     Active Substance: AZATHIOPRINE
     Dosage: 150 MG
  11. METHYLPREDNISOLONE [METHYLPREDNISOLONE ACETATE] [Suspect]
     Active Substance: METHYLPREDNISOLONE ACETATE
     Route: 014
  12. NAPROXEN. [Suspect]
     Active Substance: NAPROXEN
     Dosage: 1000 MG, QD
  13. RATIO?OXYCOCET [Suspect]
     Active Substance: ACETAMINOPHEN\OXYCODONE HYDROCHLORIDE
  14. SIMPONI [Suspect]
     Active Substance: GOLIMUMAB
  15. ENBREL [Suspect]
     Active Substance: ETANERCEPT
     Dosage: 50 G, QD
  16. ALENDRONATE SODIUM. [Suspect]
     Active Substance: ALENDRONATE SODIUM
  17. HYDROXYCHLOROQUINE SULFATE. [Suspect]
     Active Substance: HYDROXYCHLOROQUINE SULFATE
  18. PREGABALIN. [Suspect]
     Active Substance: PREGABALIN
     Dosage: 150 MG, BID
  19. METHOTREXATE. [Suspect]
     Active Substance: METHOTREXATE
     Indication: RHEUMATOID ARTHRITIS
     Dosage: 20 MG
     Route: 058
  20. PANTOLOC [Suspect]
     Active Substance: PANTOPRAZOLE SODIUM
     Dosage: UNK
     Route: 048
  21. RANITIDINE HYDROCHLORIDE. [Suspect]
     Active Substance: RANITIDINE HYDROCHLORIDE
     Dosage: 300 MG, QD
  22. XELJANZ [Suspect]
     Active Substance: TOFACITINIB CITRATE
     Dosage: 5 MG, BID
     Route: 048
  23. RANITIDINE. [Suspect]
     Active Substance: RANITIDINE
     Dosage: 150 MG, BID
     Route: 048
  24. OXYCODONE [Concomitant]
     Active Substance: OXYCODONE
  25. AZATHIOPRINE. [Suspect]
     Active Substance: AZATHIOPRINE
  26. PREGABALIN. [Suspect]
     Active Substance: PREGABALIN
     Dosage: 300 MG, QD
  27. NAPROXEN. [Suspect]
     Active Substance: NAPROXEN
     Dosage: 250 MG, BID
  28. SULFASALAZINE. [Suspect]
     Active Substance: SULFASALAZINE
     Dosage: 1000 MG, QW
     Route: 048
  29. CELEBREX [Concomitant]
     Active Substance: CELECOXIB
  30. ACTEMRA [Suspect]
     Active Substance: TOCILIZUMAB
  31. SULFAMETHOXAZOLE/TRIMETHOPRIM [Suspect]
     Active Substance: SULFAMETHOXAZOLE\TRIMETHOPRIM
  32. DEXILANT [Concomitant]
     Active Substance: DEXLANSOPRAZOLE
     Dosage: 60 MG, QD
  33. ELTROXIN [Concomitant]
     Active Substance: LEVOTHYROXINE
     Dosage: 175 UG, QD
  34. ENBREL [Suspect]
     Active Substance: ETANERCEPT
     Dosage: 50 MG, QW
  35. ESOMEPRAZOLE MAGNESIUM. [Suspect]
     Active Substance: ESOMEPRAZOLE MAGNESIUM
  36. METHOTREXATE. [Suspect]
     Active Substance: METHOTREXATE
     Dosage: 20 MG, QW
     Route: 048
  37. NAPROXEN. [Suspect]
     Active Substance: NAPROXEN
     Dosage: 250 MG, BID
  38. RANITIDINE HYDROCHLORIDE. [Suspect]
     Active Substance: RANITIDINE HYDROCHLORIDE
     Dosage: 150 MG, BID
     Route: 048
  39. XELJANZ [Suspect]
     Active Substance: TOFACITINIB CITRATE
     Indication: RHEUMATOID ARTHRITIS
     Dosage: 2 MG, QD
     Route: 048
  40. ACETAMINOPHEN. [Suspect]
     Active Substance: ACETAMINOPHEN
  41. ALENDRONIC ACID [Suspect]
     Active Substance: ALENDRONIC ACID
     Route: 048
  42. ALLOPURINOL. [Suspect]
     Active Substance: ALLOPURINOL
     Dosage: 75 MG, QD
     Route: 048
  43. AMOXICILLIN. [Suspect]
     Active Substance: AMOXICILLIN
  44. CANNABIS SATIVA [Concomitant]
     Active Substance: CANNABIS SATIVA FLOWERING TOP
  45. ENBREL [Suspect]
     Active Substance: ETANERCEPT
     Indication: RHEUMATOID ARTHRITIS
     Dosage: 50 UG, QD
  46. ENBREL [Suspect]
     Active Substance: ETANERCEPT
     Dosage: 50 MG, QD
  47. METHOTREXATE. [Suspect]
     Active Substance: METHOTREXATE
     Dosage: UNK
     Route: 058
  48. NAPROXEN. [Suspect]
     Active Substance: NAPROXEN
     Dosage: 500 UNK
     Route: 048
  49. NAPROXEN. [Suspect]
     Active Substance: NAPROXEN
     Dosage: 500 MG, QD
  50. NAPROXEN. [Suspect]
     Active Substance: NAPROXEN
     Dosage: 1000 MG, QD
  51. NAPROXEN. [Suspect]
     Active Substance: NAPROXEN
     Dosage: 500 MG, QD
  52. PANTOLOC [Suspect]
     Active Substance: PANTOPRAZOLE SODIUM
     Dosage: UNK
  53. XELJANZ [Suspect]
     Active Substance: TOFACITINIB CITRATE
     Dosage: 10 MG, QD
     Route: 048
  54. XELJANZ [Suspect]
     Active Substance: TOFACITINIB CITRATE
     Dosage: 2 MG, BID
     Route: 048
  55. GOLD [Concomitant]
     Active Substance: GOLD
     Indication: RHEUMATOID ARTHRITIS
  56. FOLIC ACID. [Concomitant]
     Active Substance: FOLIC ACID
  57. RANITIDINE. [Suspect]
     Active Substance: RANITIDINE
     Dosage: 300 MG, QD
     Route: 048
  58. MELOXICAM. [Suspect]
     Active Substance: MELOXICAM
     Dosage: 150 MG, QD
  59. ALENDRONATE SODIUM. [Suspect]
     Active Substance: ALENDRONATE SODIUM
  60. CIMZIA [Suspect]
     Active Substance: CERTOLIZUMAB PEGOL
  61. ESOMEPRAZOLE MAGNESIUM. [Suspect]
     Active Substance: ESOMEPRAZOLE MAGNESIUM
     Route: 048
  62. HUMIRA [Suspect]
     Active Substance: ADALIMUMAB
  63. METHOTREXATE. [Suspect]
     Active Substance: METHOTREXATE
     Dosage: 20 MG, QD
     Route: 058
  64. NAPROXEN. [Suspect]
     Active Substance: NAPROXEN
     Dosage: 250 UNK
     Route: 048
  65. NAPROXEN. [Suspect]
     Active Substance: NAPROXEN
     Dosage: 500 MG, BID
  66. PANTOPRAZOLE [Suspect]
     Active Substance: PANTOPRAZOLE
  67. PREDNISONE. [Suspect]
     Active Substance: PREDNISONE
     Dosage: 150 MG, QD
     Route: 048
  68. SULFASALAZINE. [Suspect]
     Active Substance: SULFASALAZINE
     Dosage: 1 G, QD
     Route: 048
  69. HUMIRA [Concomitant]
     Active Substance: ADALIMUMAB
     Indication: RHEUMATOID ARTHRITIS
  70. ADALIMUMAB ADAZ [Suspect]
     Active Substance: ADALIMUMAB-ADAZ
     Route: 058
  71. AMITRIPTYLINE HYDROCHLORIDE. [Suspect]
     Active Substance: AMITRIPTYLINE HYDROCHLORIDE
     Dosage: 75 MG, QD
  72. LEFLUNOMIDE. [Suspect]
     Active Substance: LEFLUNOMIDE
  73. CODEINE [Concomitant]
     Active Substance: CODEINE
  74. MOBICOX [Suspect]
     Active Substance: MELOXICAM
  75. PLAQUENIL [Concomitant]
     Active Substance: HYDROXYCHLOROQUINE SULFATE
  76. REMICADE [Suspect]
     Active Substance: INFLIXIMAB
  77. RATIO?OXYCOCET [Suspect]
     Active Substance: ACETAMINOPHEN\OXYCODONE HYDROCHLORIDE
  78. RITUXIMAB. [Suspect]
     Active Substance: RITUXIMAB
  79. XELJANZ [Suspect]
     Active Substance: TOFACITINIB CITRATE
     Dosage: 5 MG, BID
     Route: 048

REACTIONS (80)
  - Antinuclear antibody positive [Not Recovered/Not Resolved]
  - Muscular weakness [Not Recovered/Not Resolved]
  - Peripheral swelling [Not Recovered/Not Resolved]
  - Rash maculo-papular [Not Recovered/Not Resolved]
  - Thrombosis [Not Recovered/Not Resolved]
  - Visual impairment [Not Recovered/Not Resolved]
  - Pain [Not Recovered/Not Resolved]
  - Joint swelling [Not Recovered/Not Resolved]
  - Treatment failure [Unknown]
  - Therapeutic product effect decreased [Unknown]
  - Conjunctivitis [Not Recovered/Not Resolved]
  - Crepitations [Not Recovered/Not Resolved]
  - Fibromyalgia [Not Recovered/Not Resolved]
  - Synovial cyst [Not Recovered/Not Resolved]
  - Myalgia [Not Recovered/Not Resolved]
  - Dry eye [Not Recovered/Not Resolved]
  - Abdominal pain [Not Recovered/Not Resolved]
  - Arthralgia [Not Recovered/Not Resolved]
  - Contraindicated product administered [Unknown]
  - Drug ineffective [Unknown]
  - Pulmonary toxicity [Not Recovered/Not Resolved]
  - Synovial fluid analysis [Not Recovered/Not Resolved]
  - Eye irritation [Not Recovered/Not Resolved]
  - Eye pain [Not Recovered/Not Resolved]
  - Dyspnoea [Not Recovered/Not Resolved]
  - Dry mouth [Not Recovered/Not Resolved]
  - Drug intolerance [Unknown]
  - Back pain [Not Recovered/Not Resolved]
  - Inflammation [Not Recovered/Not Resolved]
  - Joint effusion [Not Recovered/Not Resolved]
  - Ocular hyperaemia [Not Recovered/Not Resolved]
  - Upper respiratory tract infection [Not Recovered/Not Resolved]
  - Scleritis [Not Recovered/Not Resolved]
  - Dizziness [Not Recovered/Not Resolved]
  - Rash [Not Recovered/Not Resolved]
  - C-reactive protein increased [Not Recovered/Not Resolved]
  - Pain in extremity [Not Recovered/Not Resolved]
  - Pleuritic pain [Not Recovered/Not Resolved]
  - Tenosynovitis [Not Recovered/Not Resolved]
  - Tenosynovitis stenosans [Not Recovered/Not Resolved]
  - Wheezing [Not Recovered/Not Resolved]
  - Fatigue [Not Recovered/Not Resolved]
  - Bone density decreased [Not Recovered/Not Resolved]
  - Cushingoid [Not Recovered/Not Resolved]
  - Deformity [Not Recovered/Not Resolved]
  - Feeling abnormal [Not Recovered/Not Resolved]
  - Hand deformity [Not Recovered/Not Resolved]
  - Impaired work ability [Not Recovered/Not Resolved]
  - Joint range of motion decreased [Not Recovered/Not Resolved]
  - Nodule [Not Recovered/Not Resolved]
  - Pneumonia [Not Recovered/Not Resolved]
  - Skin ulcer [Not Recovered/Not Resolved]
  - Swelling face [Not Recovered/Not Resolved]
  - Pruritus [Not Recovered/Not Resolved]
  - Allergy to chemicals [Not Recovered/Not Resolved]
  - Atelectasis [Not Recovered/Not Resolved]
  - Infection [Not Recovered/Not Resolved]
  - Interstitial lung disease [Not Recovered/Not Resolved]
  - Lung disorder [Not Recovered/Not Resolved]
  - Musculoskeletal stiffness [Not Recovered/Not Resolved]
  - Neoplasm malignant [Not Recovered/Not Resolved]
  - Photophobia [Not Recovered/Not Resolved]
  - White blood cell count decreased [Not Recovered/Not Resolved]
  - Arthritis [Not Recovered/Not Resolved]
  - Bursitis [Not Recovered/Not Resolved]
  - Erythema [Not Recovered/Not Resolved]
  - Feeling jittery [Not Recovered/Not Resolved]
  - Flank pain [Not Recovered/Not Resolved]
  - Haemoglobin decreased [Not Recovered/Not Resolved]
  - Liver disorder [Not Recovered/Not Resolved]
  - Musculoskeletal pain [Not Recovered/Not Resolved]
  - Rash pruritic [Not Recovered/Not Resolved]
  - Red blood cell count decreased [Not Recovered/Not Resolved]
  - Rheumatoid arthritis [Not Recovered/Not Resolved]
  - Rheumatoid nodule [Not Recovered/Not Resolved]
  - Tenderness [Not Recovered/Not Resolved]
  - Diarrhoea [Not Recovered/Not Resolved]
  - Malaise [Not Recovered/Not Resolved]
  - Nausea [Not Recovered/Not Resolved]
  - Off label use [Unknown]
